FAERS Safety Report 6803411-X (Version None)
Quarter: 2010Q2

REPORT INFORMATION
  Report Type: 
  Country: None (occurrence: None)
  Receive Date: 20100628
  Receipt Date: 20100621
  Transmission Date: 20101027
  Serious: Yes (Other)
  Sender: FDA-Public Use
  Company Number: CH-ROCHE-710326

PATIENT
  Age: 67 Year
  Sex: Female

DRUGS (2)
  1. BEVACIZUMAB [Suspect]
     Route: 042
     Dates: start: 20091007, end: 20100616
  2. TAXOL [Concomitant]
     Dates: start: 20091007, end: 20100223

REACTIONS (1)
  - MALIGNANT NEOPLASM PROGRESSION [None]
